FAERS Safety Report 15439854 (Version 1)
Quarter: 2018Q3

REPORT INFORMATION
  Report Type: Spontaneous
  Country: US (occurrence: US)
  Receive Date: 20180928
  Receipt Date: 20180928
  Transmission Date: 20181010
  Serious: Yes (Hospitalization)
  Sender: FDA-Public Use
  Company Number: US-SUNOVION-2018SUN003693

PATIENT
  Sex: Male
  Weight: 77.98 kg

DRUGS (7)
  1. LATUDA [Suspect]
     Active Substance: LURASIDONE HYDROCHLORIDE
     Dosage: TAPERED UP FROM UNK MG TO 120MG A DAY
     Route: 048
  2. LATUDA [Suspect]
     Active Substance: LURASIDONE HYDROCHLORIDE
     Dosage: 120 MG, QD
     Route: 048
     Dates: start: 201503
  3. LATUDA [Suspect]
     Active Substance: LURASIDONE HYDROCHLORIDE
     Indication: AUTISM SPECTRUM DISORDER
     Dosage: 120 MG, QD
     Route: 048
  4. LATUDA [Suspect]
     Active Substance: LURASIDONE HYDROCHLORIDE
     Dosage: UNK, SHAVING OFF JUST A CORNER OF THE LATUDA TABLET
     Route: 048
  5. DEPAKOTE [Concomitant]
     Active Substance: DIVALPROEX SODIUM
     Dosage: 625 MG, AM? PM
     Route: 048
  6. LATUDA [Suspect]
     Active Substance: LURASIDONE HYDROCHLORIDE
     Dosage: 100 MG, QD
     Route: 048
  7. FLUVOXAMINE [Concomitant]
     Active Substance: FLUVOXAMINE
     Indication: AUTISM SPECTRUM DISORDER
     Dosage: 100 MG, BID
     Route: 048

REACTIONS (10)
  - Dysstasia [Unknown]
  - Throat tightness [Unknown]
  - Weight increased [Unknown]
  - Off label use [Unknown]
  - Drug administration error [Unknown]
  - Fatigue [Unknown]
  - Somnolence [Unknown]
  - Irritability [Unknown]
  - Negative thoughts [Unknown]
  - Sedation [Unknown]
